FAERS Safety Report 10509995 (Version 1)
Quarter: 2014Q4

REPORT INFORMATION
  Report Type: Other
  Country: US (occurrence: US)
  Receive Date: 20141010
  Receipt Date: 20141010
  Transmission Date: 20150528
  Serious: Yes (Hospitalization)
  Sender: FDA-Public Use
  Company Number: US-SHIRE-US201406704

PATIENT
  Sex: Male

DRUGS (1)
  1. ELAPRASE [Suspect]
     Active Substance: IDURSULFASE
     Indication: MUCOPOLYSACCHARIDOSIS II
     Dosage: 24 MG, 1X/WEEK (4VIALS)
     Route: 041
     Dates: start: 20070329

REACTIONS (3)
  - Decreased appetite [Not Recovered/Not Resolved]
  - Dysuria [Recovering/Resolving]
  - Weight decreased [Not Recovered/Not Resolved]
